FAERS Safety Report 13918716 (Version 2)
Quarter: 2017Q3

REPORT INFORMATION
  Report Type: Report from Study
  Country: US (occurrence: US)
  Receive Date: 20170829
  Receipt Date: 20170928
  Transmission Date: 20171127
  Serious: No
  Sender: FDA-Public Use
  Company Number: PHEH2017US027288

PATIENT
  Sex: Female

DRUGS (1)
  1. COSENTYX [Suspect]
     Active Substance: SECUKINUMAB
     Indication: PSORIASIS
     Dosage: 300 MG, QMO (EVERY 4 WEEKS)
     Route: 058
     Dates: start: 201707

REACTIONS (1)
  - Diarrhoea [Not Recovered/Not Resolved]
